FAERS Safety Report 8415037-5 (Version None)
Quarter: 2012Q2

REPORT INFORMATION
  Report Type: 
  Country: None (occurrence: None)
  Receive Date: 20120606
  Receipt Date: 20120525
  Transmission Date: 20120825
  Serious: Yes (Hospitalization)
  Sender: FDA-Public Use
  Company Number: FR-JNJFOC-20120520773

PATIENT
  Age: 48 Year
  Sex: Female

DRUGS (1)
  1. REMICADE [Suspect]
     Indication: SPONDYLITIS
     Route: 042
     Dates: start: 20061001, end: 20120419

REACTIONS (1)
  - PULMONARY EMBOLISM [None]
